FAERS Safety Report 9189986 (Version 1)
Quarter: 2013Q1

REPORT INFORMATION
  Report Type: Spontaneous
  Country: US (occurrence: None)
  Receive Date: 20120703
  Receipt Date: 20120703
  Transmission Date: 20140127
  Serious: Yes (Other)
  Sender: FDA-Public Use
  Company Number: PHEH2012US011050

PATIENT
  Age: 64 Year
  Sex: Female

DRUGS (6)
  1. GILENYA (FTY) CAPSULE, 0.5MG [Suspect]
     Dates: start: 201112
  2. ZOCOR (SIMVASTATIN) [Concomitant]
  3. ATENOLOL (ATENOLOL) [Concomitant]
  4. ACYCLOVIR (ACYCLOVIR) [Concomitant]
  5. NEXIUM (ESOMEPRAZOLE MAGNESIUM) [Concomitant]
  6. TRIAMTERENE AND HYDROCHLOROTHIAZIDE (HYDROCHLOROTHIAZIDE, TRIAMTERENE) [Concomitant]

REACTIONS (2)
  - Decreased interest [None]
  - Depression [None]
